FAERS Safety Report 13998363 (Version 1)
Quarter: 2017Q3

REPORT INFORMATION
  Report Type: Spontaneous
  Country: FR (occurrence: FR)
  Receive Date: 20170921
  Receipt Date: 20170921
  Transmission Date: 20171128
  Serious: Yes (Other)
  Sender: FDA-Public Use
  Company Number: FR-MERCK KGAA-2027209

PATIENT
  Age: 36 Year
  Sex: Female

DRUGS (1)
  1. NOVOTHYROX [Suspect]
     Active Substance: LEVOTHYROXINE SODIUM
     Indication: HYPOTHYROIDISM
     Route: 048
     Dates: start: 20170819

REACTIONS (16)
  - Vertigo [Not Recovered/Not Resolved]
  - Pollakiuria [Not Recovered/Not Resolved]
  - Disturbance in attention [Not Recovered/Not Resolved]
  - Hypotension [Not Recovered/Not Resolved]
  - Weight increased [Not Recovered/Not Resolved]
  - Cystitis [Not Recovered/Not Resolved]
  - Palpitations [Not Recovered/Not Resolved]
  - Tremor [Not Recovered/Not Resolved]
  - Bacterial vaginosis [Not Recovered/Not Resolved]
  - Hot flush [Not Recovered/Not Resolved]
  - Malaise [Not Recovered/Not Resolved]
  - Affective disorder [Not Recovered/Not Resolved]
  - Diarrhoea [Not Recovered/Not Resolved]
  - Product formulation issue [Not Recovered/Not Resolved]
  - Lethargy [Not Recovered/Not Resolved]
  - Asthenia [Not Recovered/Not Resolved]

NARRATIVE: CASE EVENT DATE: 20170819
